FAERS Safety Report 4482937-0 (Version None)
Quarter: 2004Q3

REPORT INFORMATION
  Report Type: 
  Country: None (occurrence: None)
  Receive Date: 20040921
  Receipt Date: 20040628
  Transmission Date: 20050211
  Serious: Yes (Hospitalization)
  Sender: FDA-Public Use
  Company Number: 163-20785-04070085(0)

PATIENT
  Age: 22 Year
  Sex: Male

DRUGS (1)
  1. THALOMID [Suspect]
     Indication: BRAIN NEOPLASM MALIGNANT
     Dosage: 1200 MG, DAILY, ORAL
     Route: 048
     Dates: start: 20031208

REACTIONS (2)
  - CEREBROVASCULAR ACCIDENT [None]
  - DISEASE PROGRESSION [None]
